FAERS Safety Report 10206397 (Version 1)
Quarter: 2014Q2

REPORT INFORMATION
  Report Type: Spontaneous
  Country: US (occurrence: None)
  Receive Date: 20140527
  Receipt Date: 20140527
  Transmission Date: 20141212
  Serious: No
  Sender: FDA-Public Use
  Company Number: None

PATIENT
  Age: 54 Year
  Sex: Female
  Weight: 83.92 kg

DRUGS (8)
  1. MIRVASO 0.33% GALDERMA [Suspect]
     Indication: ROSACEA
     Dosage: APPLY A PEA SIZED AMOUNT?ONCE DAILY?APPLIED TO A SURFACE, USUALLY THE SKIN
     Route: 061
     Dates: start: 20140417, end: 20140516
  2. FEMHRT [Concomitant]
  3. SPIRONOLACTONE/HCTZ [Concomitant]
  4. ZOLPIDEM [Concomitant]
  5. CALCIUM CITRATE [Concomitant]
  6. VIT D [Concomitant]
  7. HELIOCARE [Concomitant]
  8. MULTI VIT [Concomitant]

REACTIONS (4)
  - Rebound effect [None]
  - Rash macular [None]
  - Condition aggravated [None]
  - Emotional disorder [None]
